FAERS Safety Report 15280152 (Version 1)
Quarter: 2018Q3

REPORT INFORMATION
  Report Type: Spontaneous
  Country: US (occurrence: US)
  Receive Date: 20180815
  Receipt Date: 20180815
  Transmission Date: 20181010
  Serious: No
  Sender: FDA-Public Use
  Company Number: US-SA-2018SA167555

PATIENT
  Age: 61 Year
  Sex: Female

DRUGS (1)
  1. ICY HOT MEDICATED NO MESS APPLICATOR [Suspect]
     Active Substance: MENTHOL
     Dosage: UNK
     Dates: start: 20180613

REACTIONS (3)
  - Erythema [Unknown]
  - Burning sensation [Unknown]
  - Inflammation [Unknown]

NARRATIVE: CASE EVENT DATE: 2018
